FAERS Safety Report 5717293-0 (Version None)
Quarter: 2008Q2

REPORT INFORMATION
  Report Type: 
  Country: None (occurrence: None)
  Receive Date: 20080425
  Receipt Date: 20080328
  Transmission Date: 20081010
  Serious: Yes (Other)
  Sender: FDA-Public Use
  Company Number: US-RANBAXY-2008US-14022

PATIENT

DRUGS (4)
  1. ISOTRETINOIN [Suspect]
     Indication: DRUG USE FOR UNKNOWN INDICATION
     Dosage: 40 MG, QD
     Route: 048
     Dates: start: 20080229, end: 20080323
  2. LEXAPRO [Suspect]
     Indication: DEPRESSION
     Dosage: UNK
     Route: 048
  3. WELLBUTRIN [Suspect]
     Indication: DEPRESSION
     Dosage: UNK,UNK
  4. MIRENA [Suspect]
     Indication: CONTRACEPTION

REACTIONS (2)
  - GASTROENTERITIS VIRAL [None]
  - PREGNANCY [None]
